FAERS Safety Report 11037733 (Version 3)
Quarter: 2015Q3

REPORT INFORMATION
  Report Type: Spontaneous
  Country: US (occurrence: US)
  Receive Date: 20150416
  Receipt Date: 20150818
  Transmission Date: 20151125
  Serious: Yes (Hospitalization, Disabling, Other)
  Sender: FDA-Public Use
  Company Number: US-009507513-1504USA015480

PATIENT
  Sex: Female
  Weight: 78.46 kg

DRUGS (4)
  1. ESTER-C [Concomitant]
     Active Substance: CALCIUM\VITAMINS
     Indication: VITAMIN C DECREASED
     Dosage: 1000 MG, UNK
     Dates: start: 2010, end: 2013
  2. JANUMET [Suspect]
     Active Substance: METFORMIN HYDROCHLORIDE\SITAGLIPTIN PHOSPHATE
     Dosage: 50/500 MG, BID
     Route: 048
     Dates: start: 20090725, end: 20090921
  3. OMEGA-3 MARINE TRIGLYCERIDES [Concomitant]
     Active Substance: FISH OIL
     Indication: SUPPLEMENTATION THERAPY
     Dosage: 1000 MG, UNK
     Dates: start: 2010, end: 2010
  4. JANUMET [Suspect]
     Active Substance: METFORMIN HYDROCHLORIDE\SITAGLIPTIN PHOSPHATE
     Indication: TYPE 2 DIABETES MELLITUS
     Dosage: 50/1000 MG, BID
     Route: 048
     Dates: start: 20090620, end: 20100810

REACTIONS (16)
  - Pancreatitis chronic [Not Recovered/Not Resolved]
  - Hyperglycaemia [Unknown]
  - Thyroid neoplasm [Unknown]
  - Incisional hernia [Unknown]
  - Diabetic eye disease [Unknown]
  - Adrenal mass [Unknown]
  - Pancreaticoduodenectomy [Unknown]
  - Hyperlipidaemia [Unknown]
  - Hypoglycaemia [Unknown]
  - Hypertension [Unknown]
  - Pancreatectomy [Unknown]
  - Splenectomy [Unknown]
  - Adrenalectomy [Unknown]
  - Pancreatic carcinoma [Not Recovered/Not Resolved]
  - Gastrooesophageal reflux disease [Unknown]
  - Radiotherapy [Unknown]

NARRATIVE: CASE EVENT DATE: 2010
